FAERS Safety Report 5459383-6 (Version None)
Quarter: 2007Q3

REPORT INFORMATION
  Report Type: 
  Country: None (occurrence: None)
  Receive Date: 20070919
  Receipt Date: 20070430
  Transmission Date: 20080115
  Serious: No
  Sender: FDA-Public Use
  Company Number: US-ASTRAZENECA-2007UW08846

PATIENT
  Age: 608 Month
  Sex: Female
  Weight: 118.2 kg

DRUGS (5)
  1. SEROQUEL [Suspect]
  2. RISPERDAL [Suspect]
     Indication: BIPOLAR DISORDER
     Dates: end: 20070201
  3. RISPERDAL [Suspect]
     Indication: SLEEP DISORDER
     Dates: end: 20070201
  4. ABILIFY [Concomitant]
     Dates: start: 19891130
  5. PROZAC [Concomitant]

REACTIONS (2)
  - DIABETES MELLITUS [None]
  - RENAL DISORDER [None]
